FAERS Safety Report 5744577-2 (Version None)
Quarter: 2008Q2

REPORT INFORMATION
  Report Type: 
  Country: None (occurrence: None)
  Receive Date: 20080520
  Receipt Date: 20080516
  Transmission Date: 20081010
  Serious: Yes (Life-Threatening, Hospitalization)
  Sender: FDA-Public Use
  Company Number: ES-BOEHRINGER INGELHEIM GMBH, GERMANY-2008-BP-07661RO

PATIENT
  Age: 2 Year
  Sex: Male
  Weight: 12 kg

DRUGS (4)
  1. METHADONE HCL [Suspect]
     Route: 048
  2. NALOXONE [Concomitant]
     Indication: THERAPEUTIC AGENT TOXICITY
     Route: 058
  3. NALOXONE [Concomitant]
     Route: 042
  4. OXYGEN [Concomitant]
     Indication: OXYGEN SUPPLEMENTATION
     Route: 055

REACTIONS (2)
  - ACCIDENTAL EXPOSURE [None]
  - DRUG TOXICITY [None]
